FAERS Safety Report 19841498 (Version 1)
Quarter: 2021Q3

REPORT INFORMATION
  Report Type: Spontaneous
  Country: CA (occurrence: CA)
  Receive Date: 20210915
  Receipt Date: 20210915
  Transmission Date: 20211014
  Serious: Yes (Hospitalization, Other)
  Sender: FDA-Public Use
  Company Number: CA-AMGEN-CANSP2021139099

PATIENT
  Age: 80 Year
  Sex: Female

DRUGS (3)
  1. VIT D [COLECALCIFEROL] [Concomitant]
     Dosage: UNK
  2. CALCIUM [Concomitant]
     Active Substance: CALCIUM
     Dosage: UNK
  3. PROLIA [Suspect]
     Active Substance: DENOSUMAB
     Indication: PRODUCT USED FOR UNKNOWN INDICATION
     Dosage: UNK
     Route: 065
     Dates: start: 2021

REACTIONS (3)
  - Colitis microscopic [Not Recovered/Not Resolved]
  - Myocardial infarction [Unknown]
  - Colostomy closure [Unknown]

NARRATIVE: CASE EVENT DATE: 202108
